FAERS Safety Report 14734257 (Version 1)
Quarter: 2018Q2

REPORT INFORMATION
  Report Type: Spontaneous
  Country: US (occurrence: US)
  Receive Date: 20180409
  Receipt Date: 20180409
  Transmission Date: 20180711
  Serious: Yes (Other)
  Sender: FDA-Public Use
  Company Number: US-ALKERMES INC.-ALK-2018-001981

PATIENT
  Sex: Female

DRUGS (1)
  1. VIVITROL [Suspect]
     Active Substance: NALTREXONE
     Indication: PRODUCT USED FOR UNKNOWN INDICATION
     Dosage: 380 MG, QMO
     Route: 030
     Dates: start: 2017

REACTIONS (8)
  - Injection site reaction [Unknown]
  - Injection site pain [Unknown]
  - Injection site necrosis [Recovered/Resolved]
  - Injection site infection [Unknown]
  - Product administered at inappropriate site [Unknown]
  - Injection site swelling [Unknown]
  - Injection site erythema [Unknown]
  - Injection site indentation [Unknown]

NARRATIVE: CASE EVENT DATE: 2017
